FAERS Safety Report 10921723 (Version 1)
Quarter: 2015Q1

REPORT INFORMATION
  Report Type: Spontaneous
  Country: US (occurrence: None)
  Receive Date: 20150128
  Receipt Date: 20150128
  Transmission Date: 20150721
  Serious: No
  Sender: FDA-Public Use
  Company Number: 2014TUS010804

PATIENT
  Age: 59 Year
  Sex: Male
  Weight: 117.9 kg

DRUGS (5)
  1. BRINTELLIX [Suspect]
     Active Substance: VORTIOXETINE HYDROBROMIDE
     Indication: MAJOR DEPRESSION
     Route: 048
  2. UNKNOWN LIPID LOWERING MEDICATION (ALL OTHER THERAPEUTIC PRODUCTS) [Concomitant]
  3. OTHER UNKNOWN MEDS (ALL OTHER THERAPEUTIC PRODUCTS) [Concomitant]
  4. UNKNOWN BLOOD PRESSURE PILLS (ANTIHYPERTENSIVES) [Concomitant]
  5. FLOMAX [Concomitant]
     Active Substance: TAMSULOSIN HYDROCHLORIDE

REACTIONS (1)
  - Anorgasmia [None]
